FAERS Safety Report 7582763-X (Version None)
Quarter: 2011Q2

REPORT INFORMATION
  Report Type: 
  Country: None (occurrence: None)
  Receive Date: 20110630
  Receipt Date: 20110620
  Transmission Date: 20111010
  Serious: Yes (Other)
  Sender: FDA-Public Use
  Company Number: JP-PFIZER INC-2011145424

PATIENT
  Age: 68 Year
  Sex: Male
  Weight: 41 kg

DRUGS (8)
  1. LIPITOR [Suspect]
     Dosage: 5 MG, UID/QD
     Route: 048
     Dates: start: 20110427, end: 20110501
  2. LASIX [Concomitant]
     Dosage: UNK
     Dates: start: 20110311, end: 20110501
  3. CALCIUM CARBONATE [Concomitant]
     Dosage: UNK
     Dates: start: 20110304, end: 20110501
  4. LANSOPRAZOLE [Concomitant]
     Dosage: UNK
     Dates: start: 20110303, end: 20110501
  5. AMLODIPINE BESILATE [Concomitant]
     Dosage: UNK
     Dates: end: 20110501
  6. ALFAROL [Concomitant]
     Dosage: UNK
     Dates: start: 20110315, end: 20110501
  7. WARFARIN [Concomitant]
     Dosage: UNK
     Dates: start: 20110309, end: 20110501
  8. ALOSITOL [Concomitant]
     Dosage: UNK
     Dates: start: 20110304, end: 20110501

REACTIONS (2)
  - SKIN EXFOLIATION [None]
  - URTICARIA [None]
